FAERS Safety Report 9250244 (Version 2)
Quarter: 2013Q3

REPORT INFORMATION
  Report Type: Spontaneous
  Country: US (occurrence: US)
  Receive Date: 20130424
  Receipt Date: 20130704
  Transmission Date: 20140515
  Serious: Yes (Hospitalization, Other)
  Sender: FDA-Public Use
  Company Number: US-ASTRAZENECA-2013SE27302

PATIENT
  Age: 48 Year
  Sex: Male

DRUGS (7)
  1. NEXIUM [Suspect]
     Indication: GASTRIC DISORDER
     Route: 048
     Dates: start: 1990
  2. NEXIUM [Suspect]
     Indication: GASTRIC DISORDER
     Route: 048
     Dates: start: 20020228
  3. PRILOSEC [Suspect]
     Route: 048
     Dates: start: 20010425
  4. PROTONIX [Concomitant]
     Route: 048
  5. UNIVASC [Concomitant]
  6. VICODIN [Concomitant]
     Indication: PAIN
     Dosage: PRN
  7. PROPULSID [Concomitant]

REACTIONS (17)
  - Pancreatitis [Unknown]
  - Cervical vertebral fracture [Unknown]
  - Gastric disorder [Unknown]
  - Limb discomfort [Unknown]
  - Knee deformity [Unknown]
  - Neck surgery [Unknown]
  - Musculoskeletal discomfort [Unknown]
  - Osteoporosis [Unknown]
  - Bone density decreased [Unknown]
  - Wrist fracture [Unknown]
  - Fracture [Unknown]
  - Bone disorder [Unknown]
  - Calcium deficiency [Unknown]
  - Vitamin D deficiency [Unknown]
  - Diabetes mellitus [Unknown]
  - Cervical spinal stenosis [Unknown]
  - Lumbar spinal stenosis [Unknown]
